FAERS Safety Report 10444009 (Version 1)
Quarter: 2014Q3

REPORT INFORMATION
  Report Type: Spontaneous
  Country: US (occurrence: US)
  Receive Date: 20140910
  Receipt Date: 20140910
  Transmission Date: 20150326
  Serious: Yes (Other)
  Sender: FDA-Public Use
  Company Number: US-TARO-2014P1000790

PATIENT
  Age: 61 Year
  Sex: Male
  Weight: 129.28 kg

DRUGS (11)
  1. METOPROLOL [Concomitant]
     Active Substance: METOPROLOL
  2. WARFARIN SODIUM TABLETS USP 5MG [Suspect]
     Active Substance: WARFARIN SODIUM
     Indication: ATRIAL FIBRILLATION
     Route: 048
     Dates: start: 20140119, end: 20140121
  3. ZOLPIDEM TARTRATE. [Concomitant]
     Active Substance: ZOLPIDEM TARTRATE
  4. DOFETILIDE [Concomitant]
     Active Substance: DOFETILIDE
  5. POTASSIUM [Concomitant]
     Active Substance: POTASSIUM
     Dosage: 20 BID
  6. ZEGERID [Concomitant]
     Active Substance: OMEPRAZOLE\SODIUM BICARBONATE
  7. WARFARIN SODIUM TABLETS USP 5MG [Suspect]
     Active Substance: WARFARIN SODIUM
     Route: 048
     Dates: start: 20140122, end: 20140128
  8. FUROSEMIDE. [Concomitant]
     Active Substance: FUROSEMIDE
  9. IMMODIUM AD [Concomitant]
     Dates: start: 20140124
  10. ATORVASTATIN [Concomitant]
     Active Substance: ATORVASTATIN
  11. LOVENOX [Concomitant]
     Active Substance: ENOXAPARIN SODIUM
     Dates: start: 20140117

REACTIONS (5)
  - Gastrointestinal viral infection [Unknown]
  - International normalised ratio increased [Unknown]
  - Abdominal pain [Unknown]
  - Vomiting [Recovered/Resolved]
  - Diarrhoea [Recovered/Resolved]

NARRATIVE: CASE EVENT DATE: 20140121
